FAERS Safety Report 9584217 (Version 1)
Quarter: 2013Q4

REPORT INFORMATION
  Report Type: Spontaneous
  Country: US (occurrence: US)
  Receive Date: 20131002
  Receipt Date: 20131002
  Transmission Date: 20140711
  Serious: No
  Sender: FDA-Public Use
  Company Number: US-AMGEN-USASP2013052437

PATIENT
  Age: 63 Year
  Sex: Male
  Weight: 72.56 kg

DRUGS (5)
  1. ENBREL [Suspect]
     Indication: PRODUCT USED FOR UNKNOWN INDICATION
     Dosage: 50 MG, ONCE A WEEK
     Route: 058
  2. AZOR                               /00595201/ [Concomitant]
     Dosage: 10-20 MG
  3. TIMOLOL MALEATE [Concomitant]
     Dosage: UNK
  4. SYNTHROID [Concomitant]
     Dosage: 100 MUG, UNK
  5. VITAMIN E                          /00110501/ [Concomitant]
     Dosage: 400 UNIT, UNK

REACTIONS (1)
  - Rash [Unknown]
